FAERS Safety Report 12901543 (Version 2)
Quarter: 2017Q1

REPORT INFORMATION
  Report Type: Report from Study
  Country: JP (occurrence: JP)
  Receive Date: 20161102
  Receipt Date: 20170202
  Transmission Date: 20170428
  Serious: Yes (Death, Other)
  Sender: FDA-Public Use
  Company Number: JP-BRISTOL-MYERS SQUIBB COMPANY-BMS-2016-015998

PATIENT
  Age: 72 Year
  Sex: Male

DRUGS (2)
  1. NIVOLUMAB [Suspect]
     Active Substance: NIVOLUMAB
     Indication: PRODUCT USED FOR UNKNOWN INDICATION
     Dosage: 3 MG/KG, QD
     Route: 041
     Dates: start: 20160223, end: 20160223
  2. NIVOLUMAB [Suspect]
     Active Substance: NIVOLUMAB
     Indication: NON-SMALL CELL LUNG CANCER
     Dosage: 3 MG/KG, QD
     Route: 041
     Dates: start: 20160209, end: 20160209

REACTIONS (6)
  - Aspartate aminotransferase increased [Not Recovered/Not Resolved]
  - Diarrhoea [Recovered/Resolved]
  - Enterocolitis [Recovered/Resolved]
  - Fatigue [Not Recovered/Not Resolved]
  - Alanine aminotransferase increased [Not Recovered/Not Resolved]
  - Malignant neoplasm progression [Fatal]

NARRATIVE: CASE EVENT DATE: 20160210
